FAERS Safety Report 21784192 (Version 1)
Quarter: 2022Q4

REPORT INFORMATION
  Report Type: Spontaneous
  Country: CN (occurrence: CN)
  Receive Date: 20221227
  Receipt Date: 20221227
  Transmission Date: 20230112
  Serious: Yes (Other)
  Sender: FDA-Public Use
  Company Number: CN-002147023-NVSC2020CN370753

PATIENT
  Age: 55 Year
  Sex: Male
  Weight: 56.8 kg

DRUGS (2)
  1. LAPATINIB [Suspect]
     Active Substance: LAPATINIB
     Indication: Colorectal cancer
     Dosage: 1250 MG, QD
     Route: 048
  2. LAPATINIB [Suspect]
     Active Substance: LAPATINIB
     Dosage: 1250 MG, QD
     Route: 048
     Dates: start: 20180715

REACTIONS (5)
  - Colorectal cancer [Unknown]
  - Malignant neoplasm progression [Unknown]
  - Drug resistance [Unknown]
  - Product use in unapproved indication [Unknown]
  - Therapy partial responder [Unknown]
